FAERS Safety Report 6441940-1 (Version None)
Quarter: 2009Q4

REPORT INFORMATION
  Report Type: 
  Country: None (occurrence: None)
  Receive Date: 20091116
  Receipt Date: 20091106
  Transmission Date: 20100525
  Serious: Yes (Other)
  Sender: FDA-Public Use
  Company Number: US-PFIZER INC-2009266760

PATIENT
  Sex: Female
  Weight: 49.433 kg

DRUGS (2)
  1. XALATAN [Suspect]
     Indication: BORDERLINE GLAUCOMA
     Dosage: ONE DROP IN EACH EYE BEFORE BEDTIME
     Route: 047
     Dates: start: 20070101
  2. TYLENOL (CAPLET) [Concomitant]
     Indication: ARTHRITIS

REACTIONS (1)
  - HIP ARTHROPLASTY [None]
